FAERS Safety Report 8339057-4 (Version None)
Quarter: 2012Q2

REPORT INFORMATION
  Report Type: 
  Country: None (occurrence: None)
  Receive Date: 20120502
  Receipt Date: 20120424
  Transmission Date: 20120825
  Serious: Yes (Other)
  Sender: FDA-Public Use
  Company Number: 1204-219

PATIENT

DRUGS (1)
  1. EYLEA [Suspect]
     Dosage: ONCE, INTRAVITREAL

REACTIONS (1)
  - BLINDNESS [None]
